FAERS Safety Report 16614499 (Version 1)
Quarter: 2019Q3

REPORT INFORMATION
  Report Type: Spontaneous
  Country: US (occurrence: US)
  Receive Date: 20190723
  Receipt Date: 20190723
  Transmission Date: 20191004
  Serious: No
  Sender: FDA-Public Use
  Company Number: US-PFIZER INC-2019308041

PATIENT
  Age: 84 Year

DRUGS (1)
  1. FLECTOR [Suspect]
     Active Substance: DICLOFENAC EPOLAMINE
     Indication: ARTHRITIS
     Dosage: UNK

REACTIONS (4)
  - Off label use [Unknown]
  - Insomnia [Unknown]
  - Drug effective for unapproved indication [Unknown]
  - Pain [Unknown]
